FAERS Safety Report 9711471 (Version 2)
Quarter: 2013Q4

REPORT INFORMATION
  Report Type: Spontaneous
  Country: US (occurrence: US)
  Receive Date: 20131126
  Receipt Date: 20131126
  Transmission Date: 20140711
  Serious: No
  Sender: FDA-Public Use
  Company Number: US-BRISTOL-MYERS SQUIBB COMPANY-18754689

PATIENT
  Age: 61 Year
  Sex: Female
  Weight: 79.36 kg

DRUGS (4)
  1. BYDUREON [Suspect]
     Indication: TYPE 2 DIABETES MELLITUS
     Route: 058
     Dates: start: 201301
  2. METFORMIN HCL [Suspect]
     Route: 048
  3. LANTUS [Suspect]
  4. INSULIN [Suspect]
     Dosage: 1DF = 10UNITS
     Route: 058

REACTIONS (4)
  - Injection site reaction [Unknown]
  - Blood glucose fluctuation [Recovering/Resolving]
  - Injection site nodule [Unknown]
  - Injection site bruising [Unknown]
